FAERS Safety Report 20909157 (Version 1)
Quarter: 2022Q2

REPORT INFORMATION
  Report Type: Spontaneous
  Country: US (occurrence: US)
  Receive Date: 20220603
  Receipt Date: 20220603
  Transmission Date: 20220721
  Serious: No
  Sender: FDA-Public Use
  Company Number: US-JNJFOC-20220600923

PATIENT
  Age: 81 Year
  Sex: Male

DRUGS (3)
  1. ERLEADA [Suspect]
     Active Substance: APALUTAMIDE
     Indication: Product used for unknown indication
     Route: 048
  2. ORGOVYX [Suspect]
     Active Substance: RELUGOLIX
     Indication: Prostate cancer
     Route: 048
  3. ORGOVYX [Suspect]
     Active Substance: RELUGOLIX
     Route: 048

REACTIONS (4)
  - Dyspnoea [Not Recovered/Not Resolved]
  - Feeling abnormal [Unknown]
  - Insomnia [Unknown]
  - Constipation [Unknown]
